FAERS Safety Report 8488353-9 (Version None)
Quarter: 2012Q3

REPORT INFORMATION
  Report Type: 
  Country: None (occurrence: None)
  Receive Date: 20120705
  Receipt Date: 20120627
  Transmission Date: 20120928
  Serious: Yes (Other)
  Sender: FDA-Public Use
  Company Number: US-JNJFOC-20120614496

PATIENT
  Age: 55 Year
  Sex: Female

DRUGS (7)
  1. REMICADE [Suspect]
     Indication: PSORIATIC ARTHROPATHY
     Dosage: THERAPY DURATION OF OVER A YEAR
     Route: 042
  2. FLEXERIL [Concomitant]
  3. OXYCODONE HCL [Concomitant]
  4. PREDNISONE [Suspect]
     Indication: PSORIATIC ARTHROPATHY
  5. PHENERGAN HCL [Concomitant]
     Indication: NAUSEA
  6. PREDNISONE [Suspect]
  7. METHOTREXATE [Suspect]
     Indication: PSORIATIC ARTHROPATHY

REACTIONS (8)
  - SCLERITIS [None]
  - DRUG INEFFECTIVE [None]
  - SPONDYLITIS [None]
  - DEPRESSION [None]
  - FEELING ABNORMAL [None]
  - ACTIVITIES OF DAILY LIVING IMPAIRED [None]
  - ADRENAL INSUFFICIENCY [None]
  - BONE DENSITY DECREASED [None]
